FAERS Safety Report 11837666 (Version 2)
Quarter: 2016Q1

REPORT INFORMATION
  Report Type: Report from Study
  Country: US (occurrence: US)
  Receive Date: 20151215
  Receipt Date: 20160301
  Transmission Date: 20160525
  Serious: No
  Sender: FDA-Public Use
  Company Number: US-AMGEN-USASL2015127309

PATIENT
  Age: 54 Year
  Sex: Female
  Weight: 63.49 kg

DRUGS (1)
  1. ENBREL [Suspect]
     Active Substance: ETANERCEPT
     Indication: RHEUMATOID ARTHRITIS
     Dosage: 50 MG, QWK
     Route: 058
     Dates: start: 201511, end: 20151127

REACTIONS (15)
  - Scar [Recovering/Resolving]
  - Fatigue [Unknown]
  - Urticaria [Recovered/Resolved]
  - Pain in extremity [Unknown]
  - Weight increased [Unknown]
  - Injection site hypoaesthesia [Unknown]
  - Injection site mass [Unknown]
  - Skin irritation [Unknown]
  - Injection site macule [Unknown]
  - Injection site reaction [Unknown]
  - Rash [Recovered/Resolved]
  - Injection site pruritus [Unknown]
  - Malaise [Unknown]
  - Impaired healing [Recovering/Resolving]
  - Injection site urticaria [Unknown]

NARRATIVE: CASE EVENT DATE: 2015
